FAERS Safety Report 20163654 (Version 1)
Quarter: 2021Q4

REPORT INFORMATION
  Report Type: Spontaneous
  Country: DE (occurrence: DE)
  Receive Date: 20211209
  Receipt Date: 20211209
  Transmission Date: 20220303
  Serious: Yes (Other)
  Sender: FDA-Public Use
  Company Number: DE-JNJFOC-20211156603

PATIENT
  Sex: Female

DRUGS (2)
  1. ADALIMUMAB [Suspect]
     Active Substance: ADALIMUMAB
     Indication: Crohn^s disease
     Dosage: UNK
     Route: 065
  2. REMICADE [Suspect]
     Active Substance: INFLIXIMAB
     Indication: Crohn^s disease
     Dosage: UNK
     Route: 042

REACTIONS (10)
  - Drug specific antibody [Unknown]
  - Crohn^s disease [Unknown]
  - Adhesiolysis [Unknown]
  - Crohn^s disease [Unknown]
  - Jejunectomy [Unknown]
  - Tumour inflammation [Unknown]
  - Abscess intestinal [Unknown]
  - Haematochezia [Unknown]
  - Pelvic abscess [Unknown]
  - Enterostomy [Unknown]

NARRATIVE: CASE EVENT DATE: 20070801
